FAERS Safety Report 9322845 (Version 2)
Quarter: 2013Q4

REPORT INFORMATION
  Report Type: Spontaneous
  Country: US (occurrence: US)
  Receive Date: 20130601
  Receipt Date: 20131004
  Transmission Date: 20140711
  Serious: Yes (Disabling, Other)
  Sender: FDA-Public Use
  Company Number: US-ASTRAZENECA-2013SE38652

PATIENT
  Age: 43 Year
  Sex: Male
  Weight: 81.6 kg

DRUGS (22)
  1. NEXIUM [Suspect]
     Indication: DYSPEPSIA
     Dosage: DAILY
     Route: 048
     Dates: start: 2000
  2. PRILOSEC [Suspect]
     Route: 048
  3. PRILOSEC [Suspect]
     Route: 048
     Dates: start: 20011118
  4. PROTONIX [Concomitant]
     Dates: start: 2003
  5. ZANTAC [Concomitant]
  6. ACIPHEX [Concomitant]
  7. TUMS [Concomitant]
  8. ALKA SELTZER [Concomitant]
  9. PEPTO BISMOL [Concomitant]
  10. CRESTOR [Concomitant]
  11. NEURONTIN [Concomitant]
  12. AMBIEN [Concomitant]
  13. XANAX [Concomitant]
  14. PERCOCET [Concomitant]
  15. BUPROPION [Concomitant]
  16. LANTUS [Concomitant]
  17. EMBREL [Concomitant]
  18. LOVAZA [Concomitant]
  19. METOCLOPRAMIDE [Concomitant]
     Dates: start: 20080502
  20. METOCLOPRAMIDE [Concomitant]
     Dosage: 1 TABLET A HALF HOURBEFORE MEALS AND BAD TIME
  21. METHYLPREDNISOLONE [Concomitant]
  22. SEROQUEL [Concomitant]

REACTIONS (12)
  - Osteonecrosis [Unknown]
  - Arthropathy [Unknown]
  - General physical health deterioration [Unknown]
  - Osteoporosis [Unknown]
  - Bone disorder [Unknown]
  - Multiple fractures [Unknown]
  - Bone density decreased [Unknown]
  - Arthritis [Unknown]
  - Diabetes mellitus [Unknown]
  - Osteopenia [Unknown]
  - Rheumatoid arthritis [Unknown]
  - Depression [Unknown]
